FAERS Safety Report 15474197 (Version 2)
Quarter: 2018Q4

REPORT INFORMATION
  Report Type: Spontaneous
  Country: US (occurrence: US)
  Receive Date: 20181008
  Receipt Date: 20181130
  Transmission Date: 20190205
  Serious: Yes (Other)
  Sender: FDA-Public Use
  Company Number: US-SA-2018SA275724

PATIENT
  Sex: Female

DRUGS (3)
  1. PLAVIX [Suspect]
     Active Substance: CLOPIDOGREL BISULFATE
     Dosage: UNK UNK, UNK
  2. ELIQUIS [Suspect]
     Active Substance: APIXABAN
     Dosage: 5 UNK
  3. ELIQUIS [Suspect]
     Active Substance: APIXABAN
     Indication: COAGULOPATHY
     Dosage: 10 MG, BID
     Route: 065

REACTIONS (4)
  - Dry mouth [Unknown]
  - Contusion [Unknown]
  - Haemorrhage [Unknown]
  - Swollen tongue [Unknown]
